FAERS Safety Report 20017332 (Version 9)
Quarter: 2023Q1

REPORT INFORMATION
  Report Type: Report from Study
  Country: US (occurrence: US)
  Receive Date: 20211030
  Receipt Date: 20230107
  Transmission Date: 20230417
  Serious: Yes (Life-Threatening, Hospitalization, Other)
  Sender: FDA-Public Use
  Company Number: US-NOVARTISPH-NVSC2021US245734

PATIENT
  Age: 5 Year
  Sex: Female
  Weight: 15.42 kg

DRUGS (15)
  1. TREPROSTINIL [Suspect]
     Active Substance: TREPROSTINIL
     Indication: Pulmonary arterial hypertension
     Dosage: 90.1 NG/KG/MIN, CONT
     Route: 058
     Dates: start: 20210611
  2. TREPROSTINIL [Suspect]
     Active Substance: TREPROSTINIL
     Dosage: 90.9 NG/KG/MIN, CONT
     Route: 058
  3. TREPROSTINIL [Suspect]
     Active Substance: TREPROSTINIL
     Dosage: 90.9 NG/KG/MIN, CONT
     Route: 058
  4. TREPROSTINIL [Suspect]
     Active Substance: TREPROSTINIL
     Dosage: 91 NG/KG/MIN, CONT (STRENGTH 1MG/ML)
     Route: 042
  5. TADALAFIL [Concomitant]
     Active Substance: TADALAFIL
     Indication: Product used for unknown indication
     Dosage: 2 ML, QD (ENTERAL LIQUID) (10 MG TOTAL)
     Route: 048
     Dates: start: 20220111
  6. LETAIRIS [Concomitant]
     Active Substance: AMBRISENTAN
     Indication: Product used for unknown indication
     Dosage: UNK UNK, QD (DISSOLVE 1 TABLET IN 5 ML OF WATER AND GIVE 2.6 ML)
     Route: 065
     Dates: start: 20220616
  7. REMODULIN [Concomitant]
     Active Substance: TREPROSTINIL
     Indication: Product used for unknown indication
     Dosage: 88 NG/KG/MIN (RATE 0.018ML/HR)
     Route: 058
  8. REMODULIN [Concomitant]
     Active Substance: TREPROSTINIL
     Dosage: 1499.85 NG/KG/MIN, CONT
     Route: 058
     Dates: start: 20211108
  9. REMODULIN [Concomitant]
     Active Substance: TREPROSTINIL
     Dosage: 90.9 NG, CONT (RATE 0.018ML/H)
     Route: 058
  10. ZYRTEC [Concomitant]
     Active Substance: CETIRIZINE HYDROCHLORIDE
     Indication: Product used for unknown indication
     Dosage: 10 ML, PRN (10 MG TOTAL)
     Route: 048
     Dates: start: 20220519
  11. CLEOCIN [Concomitant]
     Active Substance: CLINDAMYCIN PHOSPHATE
     Indication: Product used for unknown indication
     Dosage: 11.5 ML, TID (172.5 MG TOTAL)
     Route: 048
  12. BANOPHEN [Concomitant]
     Active Substance: DIPHENHYDRAMINE HYDROCHLORIDE
     Indication: Product used for unknown indication
     Dosage: 5 ML, EVERY 6 HOURS, PRN (12.5 MG TOTAL)
     Route: 048
     Dates: start: 20201110
  13. XOPENEX HFA [Concomitant]
     Active Substance: LEVALBUTEROL TARTRATE
     Indication: Cough
     Dosage: UNK, PRN (45 MCG/ACTUATION) (INHALE 2 PUFFS INTO THE LUNGS EVERY 6 HOURS)
     Dates: start: 20200528
  14. EMLA [Concomitant]
     Active Substance: LIDOCAINE\PRILOCAINE
     Indication: Product used for unknown indication
     Dosage: UNK, PRN (APPLY 1 APPLICATION TOPLOALLY AS NEEDED)
     Route: 061
  15. AMBRISENTAN [Concomitant]
     Active Substance: AMBRISENTAN
     Indication: Product used for unknown indication
     Dosage: UNK
     Route: 065

REACTIONS (13)
  - Syncope [Recovered/Resolved with Sequelae]
  - Device delivery system issue [Recovered/Resolved with Sequelae]
  - Drug dose omission by device [Recovered/Resolved with Sequelae]
  - Product use issue [Recovered/Resolved with Sequelae]
  - Localised infection [Recovering/Resolving]
  - Catheter site infection [Recovered/Resolved]
  - Croup infectious [Unknown]
  - Loss of consciousness [Unknown]
  - Nasopharyngitis [Recovered/Resolved]
  - Pharyngitis streptococcal [Recovered/Resolved]
  - Dizziness [Unknown]
  - Fall [Unknown]
  - Abnormal faeces [Unknown]

NARRATIVE: CASE EVENT DATE: 20211016
